FAERS Safety Report 5770130-0 (Version None)
Quarter: 2008Q2

REPORT INFORMATION
  Report Type: 
  Country: None (occurrence: None)
  Receive Date: 20080613
  Receipt Date: 20080421
  Transmission Date: 20081010
  Serious: No
  Sender: FDA-Public Use
  Company Number: US-ABBOTT-08P-163-0448292-00

PATIENT
  Sex: Female
  Weight: 68.1 kg

DRUGS (2)
  1. HUMIRA [Suspect]
     Indication: COLITIS
     Route: 058
     Dates: start: 20080307
  2. RIFAXIMIN [Concomitant]
     Indication: GASTROINTESTINAL DISORDER
     Route: 048

REACTIONS (3)
  - HEADACHE [None]
  - ORAL INFECTION [None]
  - SNEEZING [None]
